FAERS Safety Report 7515594-7 (Version None)
Quarter: 2011Q2

REPORT INFORMATION
  Report Type: 
  Country: None (occurrence: None)
  Receive Date: 20110601
  Receipt Date: 20110519
  Transmission Date: 20111010
  Serious: Yes (Other)
  Sender: FDA-Public Use
  Company Number: US-JNJFOC-20110509362

PATIENT
  Age: 24 Year
  Sex: Male
  Weight: 77.11 kg

DRUGS (1)
  1. RISPERDAL CONSTA [Suspect]
     Indication: PRODUCT USED FOR UNKNOWN INDICATION
     Route: 030
     Dates: start: 20100101, end: 20100701

REACTIONS (13)
  - EXTRAPYRAMIDAL DISORDER [None]
  - OBESITY [None]
  - IRRITABLE BOWEL SYNDROME [None]
  - PSYCHOTIC DISORDER [None]
  - ACNE [None]
  - IRRITABILITY [None]
  - DIARRHOEA [None]
  - CONFUSIONAL STATE [None]
  - GYNAECOMASTIA [None]
  - INSOMNIA [None]
  - DRUG HYPERSENSITIVITY [None]
  - OFF LABEL USE [None]
  - INFLUENZA [None]
